FAERS Safety Report 8056233-9 (Version None)
Quarter: 2012Q1

REPORT INFORMATION
  Report Type: 
  Country: None (occurrence: None)
  Receive Date: 20120119
  Receipt Date: 20120111
  Transmission Date: 20120608
  Serious: Yes (Other)
  Sender: FDA-Public Use
  Company Number: PHHY2012GB002333

PATIENT
  Age: 68 Year
  Sex: Male
  Weight: 81 kg

DRUGS (6)
  1. ASACOL [Concomitant]
     Dosage: UNK UKN, UNK
     Dates: start: 20110912
  2. CITALOPRAM [Concomitant]
     Dosage: UNK UKN, UNK
  3. TIMOLOL MALEATE [Concomitant]
     Dosage: UNK UKN, UNK
     Dates: start: 20111220
  4. SIMVASTATIN [Concomitant]
     Dosage: UNK UKN, UNK
     Dates: start: 20111109
  5. MIRTAZAPINE [Suspect]
     Dosage: UNK UKN, UNK
     Dates: start: 20111221
  6. LOCERYL [Concomitant]
     Dosage: UNK UKN, UNK
     Dates: start: 20110706, end: 20111119

REACTIONS (4)
  - MUSCLE TWITCHING [None]
  - URINARY TRACT DISORDER [None]
  - NOCTURIA [None]
  - DIZZINESS [None]
